FAERS Safety Report 17376081 (Version 1)
Quarter: 2020Q1

REPORT INFORMATION
  Report Type: Spontaneous
  Country: DE (occurrence: DE)
  Receive Date: 20200206
  Receipt Date: 20200206
  Transmission Date: 20200409
  Serious: Yes (Life-Threatening, Hospitalization)
  Sender: FDA-Public Use
  Company Number: DE-MYLANLABS-2020M1013744

PATIENT
  Age: 88 Year
  Sex: Male

DRUGS (14)
  1. PANTOPRAZOL                        /01263201/ [Concomitant]
     Active Substance: PANTOPRAZOLE
     Dosage: 40 MILLIGRAM(40 MG, 1-0-0-0 )
  2. HEPARIN [Concomitant]
     Active Substance: HEPARIN SODIUM
     Dosage: 5000 IE, 1-0-1-0; AN DIALYSEFREIEN TAGEN
  3. TORASEMID [Concomitant]
     Active Substance: TORSEMIDE
     Dosage: 100 MILLIGRAM(100 MG, 1-0-0-0; AN DIALYSEFREIEN TAGEN)
  4. SERTRALINE [Suspect]
     Active Substance: SERTRALINE HYDROCHLORIDE
     Indication: PRODUCT USED FOR UNKNOWN INDICATION
     Dosage: 100 MILLIGRAM(100 MG, 1-0-0-0   )
  5. FOSTER [Concomitant]
     Active Substance: BECLOMETHASONE\FORMOTEROL
     Dosage: 100|6 ?G, 1-0-1-0
  6. LEVOCETIRIZINE [Concomitant]
     Active Substance: LEVOCETIRIZINE
     Dosage: 5 MILLIGRAM (5 MG, BEDARF)
  7. LORAZEPAM. [Suspect]
     Active Substance: LORAZEPAM
     Indication: PRODUCT USED FOR UNKNOWN INDICATION
     Dosage: 0.5 MILLIGRAM(0.5 MG, BEDARF)
  8. MOVICOL [Concomitant]
     Active Substance: POLYETHYLENE GLYCOL 3350\POTASSIUM CHLORIDE\SODIUM BICARBONATE\SODIUM CHLORIDE
     Dosage: NK MG, BEDARF
  9. METAMIZOL                          /06276701/ [Concomitant]
     Active Substance: METAMIZOLE
     Dosage: 1 GRAM(1 G, BEDARF; BIS ZU 4X/D)
  10. MADOPAR [Concomitant]
     Active Substance: BENSERAZIDE HYDROCHLORIDE\LEVODOPA
     Dosage: 100|25 MG, 0-0-1-1
  11. CALCET                             /00637401/ [Concomitant]
     Dosage: 950 MILLIGRAM(950 MG, 1-1-1-0   )
  12. ATORVASTATIN [Concomitant]
     Active Substance: ATORVASTATIN
     Dosage: 40 MILLIGRAM (40 MG, 0-0-1-0 )
  13. FENTANYL. [Suspect]
     Active Substance: FENTANYL
     Indication: PRODUCT USED FOR UNKNOWN INDICATION
     Dosage: 75 ?G/H, WECHSEL MO UND DO, PFLASTER TRANSDERMAL
     Route: 062
  14. ACETYLSALICYLSAEURE [Concomitant]
     Active Substance: ASPIRIN
     Dosage: 100 MILLIGRAM(100 MG, 0-1-0-0 )

REACTIONS (2)
  - Product prescribing error [Unknown]
  - Depressed level of consciousness [Unknown]

NARRATIVE: CASE EVENT DATE: 20170510
